FAERS Safety Report 21612185 (Version 2)
Quarter: 2022Q4

REPORT INFORMATION
  Report Type: Spontaneous
  Country: IT (occurrence: IT)
  Receive Date: 20221118
  Receipt Date: 20221210
  Transmission Date: 20230113
  Serious: Yes (Other)
  Sender: FDA-Public Use
  Company Number: None

PATIENT
  Age: 19 Year
  Sex: Female
  Weight: 58 kg

DRUGS (1)
  1. CYCLOSPORINE [Suspect]
     Active Substance: CYCLOSPORINE
     Indication: Psoriasis
     Dosage: 225 MILLIGRAM DAILY; THE PATIENT TOOK 1 CP OF 100 MG PLUS 1 CP OF 25 MG IN THE MORNING AND 1 CP FROM
     Dates: start: 20211214, end: 20220304

REACTIONS (2)
  - Eczema [Recovering/Resolving]
  - Loss of therapeutic response [Recovering/Resolving]

NARRATIVE: CASE EVENT DATE: 20220304
